FAERS Safety Report 7374994-9 (Version None)
Quarter: 2011Q1

REPORT INFORMATION
  Report Type: 
  Country: None (occurrence: None)
  Receive Date: 20110325
  Receipt Date: 20110318
  Transmission Date: 20110831
  Serious: Yes (Other)
  Sender: FDA-Public Use
  Company Number: PHHY2010BR53018

PATIENT
  Sex: Female
  Weight: 52 kg

DRUGS (2)
  1. PARLODEL [Suspect]
     Indication: PROLACTINOMA
     Dosage: UNK
     Route: 048
     Dates: start: 20100710
  2. PARLODEL [Suspect]
     Dosage: 2.5 MG, UNK

REACTIONS (6)
  - DIZZINESS [None]
  - DRUG DISPENSING ERROR [None]
  - FEELING ABNORMAL [None]
  - TACHYCARDIA [None]
  - BLOOD PRESSURE DECREASED [None]
  - HEAD DISCOMFORT [None]
